FAERS Safety Report 9842960 (Version 2)
Quarter: 2014Q3

REPORT INFORMATION
  Report Type: Spontaneous
  Country: US (occurrence: US)
  Receive Date: 20140124
  Receipt Date: 20140723
  Transmission Date: 20150326
  Serious: Yes (Death)
  Sender: FDA-Public Use
  Company Number: US-009507513-1401USA009972

PATIENT
  Sex: Female

DRUGS (1)
  1. NUVARING [Suspect]
     Active Substance: ETHINYL ESTRADIOL\ETONOGESTREL
     Indication: PRODUCT USED FOR UNKNOWN INDICATION
     Dosage: UNK
     Route: 067
     Dates: start: 20120331

REACTIONS (10)
  - Thyroid neoplasm [Unknown]
  - Death [Fatal]
  - Abdominal pain [Unknown]
  - Arthralgia [Unknown]
  - Chronic sinusitis [Unknown]
  - Glaucoma [Unknown]
  - Genital herpes [Unknown]
  - Pituitary tumour [Unknown]
  - Deep vein thrombosis [Unknown]
  - Prolactinoma [Unknown]

NARRATIVE: CASE EVENT DATE: 201304
